FAERS Safety Report 18051509 (Version 2)
Quarter: 2020Q3

REPORT INFORMATION
  Report Type: Report from Study
  Country: ES (occurrence: ES)
  Receive Date: 20200722
  Receipt Date: 20200728
  Transmission Date: 20201103
  Serious: Yes (Other)
  Sender: FDA-Public Use
  Company Number: ES-AMGEN-ESPNI2020114557

PATIENT
  Age: 74 Year
  Sex: Male
  Weight: 72.4 kg

DRUGS (6)
  1. PANITUMUMAB [Suspect]
     Active Substance: PANITUMUMAB
     Dosage: 450 MILLIGRAM, Q2WK
     Route: 042
     Dates: start: 20200625
  2. 5 FU [Suspect]
     Active Substance: FLUOROURACIL
     Dosage: 4200 MILLIGRAM, Q2WK
     Route: 042
     Dates: start: 20191121
  3. 5 FU [Suspect]
     Active Substance: FLUOROURACIL
     Indication: COLORECTAL CANCER
     Dosage: 690 MILLIGRAM, Q2WK
     Route: 040
     Dates: start: 20191121
  4. PANITUMUMAB [Suspect]
     Active Substance: PANITUMUMAB
     Indication: COLORECTAL CANCER
     Dosage: 450 MILLIGRAM, Q2WK
     Route: 042
     Dates: start: 20191121
  5. OXALIPLATIN. [Suspect]
     Active Substance: OXALIPLATIN
     Indication: COLORECTAL CANCER
     Dosage: 150 MILLIGRAM, Q2WK
     Route: 042
     Dates: start: 20191121
  6. FOLINIC ACID [Concomitant]
     Active Substance: LEUCOVORIN
     Indication: COLORECTAL CANCER
     Dosage: 690 MILLIGRAM, Q2WK
     Route: 042
     Dates: start: 20191121

REACTIONS (2)
  - Neutropenia [Recovered/Resolved]
  - Anaemia [Not Recovered/Not Resolved]

NARRATIVE: CASE EVENT DATE: 20200602
